FAERS Safety Report 6258294-6 (Version None)
Quarter: 2009Q3

REPORT INFORMATION
  Report Type: 
  Country: None (occurrence: None)
  Receive Date: 20090707
  Receipt Date: 20090630
  Transmission Date: 20100115
  Serious: Yes (Hospitalization, Other)
  Sender: FDA-Public Use
  Company Number: US-ROXANE LABORATORIES, INC.-2009-RO-00637RO

PATIENT
  Age: 61 Year
  Sex: Male

DRUGS (12)
  1. LITHIUM CARBONATE [Suspect]
     Indication: BIPOLAR DISORDER
     Route: 048
  2. LITHIUM CARBONATE [Suspect]
     Dosage: 1350 MG
     Route: 048
  3. PIPERACILLIN SODIUM AND TAZOBACTAM SODIUM [Suspect]
     Indication: OSTEOMYELITIS
     Dosage: 13.5 MG
     Route: 042
  4. LOSARTAN POTASSIUM [Suspect]
     Indication: HYPERTENSION
     Route: 048
  5. LOSARTAN POTASSIUM [Suspect]
     Dosage: 50 MG
     Route: 048
  6. TERAZOSIN HCL [Suspect]
     Indication: HYPERTENSION
     Dosage: 5 MG
     Route: 048
  7. REGULAR INSULIN [Suspect]
     Indication: DIABETES MELLITUS
     Route: 058
  8. AMITRIPTYLINE [Suspect]
     Indication: NEURALGIA
     Dosage: 25 MG
     Route: 048
  9. ASPIRIN [Suspect]
     Dosage: 81 MG
     Route: 048
  10. ENOXAPARIN SODIUM [Suspect]
     Route: 058
  11. NPH INSULIN [Suspect]
     Indication: DIABETES MELLITUS
     Route: 058
  12. MULTI-VITAMIN [Suspect]

REACTIONS (8)
  - ACUTE PRERENAL FAILURE [None]
  - BLOOD CREATININE INCREASED [None]
  - BLOOD UREA INCREASED [None]
  - DEHYDRATION [None]
  - DRUG INTERACTION [None]
  - HYPONATRAEMIA [None]
  - OSTEOMYELITIS [None]
  - THERAPEUTIC AGENT TOXICITY [None]
